FAERS Safety Report 15243812 (Version 2)
Quarter: 2018Q4

REPORT INFORMATION
  Report Type: Spontaneous
  Country: US (occurrence: US)
  Receive Date: 20180806
  Receipt Date: 20181210
  Transmission Date: 20190204
  Serious: Yes (Other)
  Sender: FDA-Public Use
  Company Number: US-SA-2018SA208953

PATIENT
  Age: 52 Year
  Sex: Female
  Weight: 118 kg

DRUGS (7)
  1. NEULASTA [Concomitant]
     Active Substance: PEGFILGRASTIM
     Dosage: UNK UNK, UNK
  2. VITAMIN B12 [VITAMIN B12 NOS] [Concomitant]
     Dosage: UNK UNK, UNK
  3. NEOSAR [Concomitant]
     Active Substance: CYCLOPHOSPHAMIDE
     Dosage: UNK UNK, UNK
  4. CYTOXAN [Concomitant]
     Active Substance: CYCLOPHOSPHAMIDE
     Dosage: UNK UNK, UNK
  5. IRON [Concomitant]
     Active Substance: IRON
     Dosage: UNK UNK, UNK
  6. TAXOTERE [Suspect]
     Active Substance: DOCETAXEL
     Indication: BREAST CANCER FEMALE
     Dosage: 165-167MG, Q3W
     Route: 042
     Dates: start: 20170629, end: 20170629
  7. TAXOTERE [Suspect]
     Active Substance: DOCETAXEL
     Dosage: 165-167 MG,Q3W
     Route: 042
     Dates: start: 20170831, end: 20170831

REACTIONS (1)
  - Alopecia [Recovering/Resolving]

NARRATIVE: CASE EVENT DATE: 201707
